FAERS Safety Report 25334833 (Version 1)
Quarter: 2025Q2

REPORT INFORMATION
  Report Type: Spontaneous
  Country: US (occurrence: US)
  Receive Date: 20250520
  Receipt Date: 20250520
  Transmission Date: 20250717
  Serious: No
  Sender: CURIUM PHARMACEUTICALS
  Company Number: US-CURIUM-2024001049

PATIENT
  Age: 68 Year
  Sex: Female
  Weight: 76.7 kg

DRUGS (1)
  1. DETECTNET [Suspect]
     Active Substance: COPPER OXODOTREOTIDE CU-64
     Indication: Imaging procedure
     Route: 042
     Dates: start: 20241009, end: 20241009

REACTIONS (4)
  - Flushing [Unknown]
  - Chest pain [Unknown]
  - Abdominal pain upper [Unknown]
  - Nausea [Unknown]

NARRATIVE: CASE EVENT DATE: 20241009
